FAERS Safety Report 14995919 (Version 1)
Quarter: 2018Q2

REPORT INFORMATION
  Report Type: Report from Study
  Country: US (occurrence: US)
  Receive Date: 20180611
  Receipt Date: 20180611
  Transmission Date: 20180711
  Serious: Yes (Death, Hospitalization, Other)
  Sender: FDA-Public Use
  Company Number: US-PFIZER INC-2018147560

PATIENT
  Age: 65 Year
  Sex: Female

DRUGS (3)
  1. IBRANCE [Suspect]
     Active Substance: PALBOCICLIB
     Dosage: 100 MG, DAILY
     Route: 048
     Dates: start: 20180427, end: 20180603
  2. IBRANCE [Suspect]
     Active Substance: PALBOCICLIB
     Indication: BREAST CANCER FEMALE
     Dosage: 125 MG, DAILY
     Route: 048
     Dates: start: 20180327, end: 20180409
  3. IBRANCE [Suspect]
     Active Substance: PALBOCICLIB
     Dosage: 75 MG, CYCLIC (DAILY 21 DAYS, 7 DAYS OFF)
     Route: 048
     Dates: start: 2018

REACTIONS (10)
  - White blood cell count decreased [Recovered/Resolved]
  - Pulmonary oedema [Unknown]
  - Death [Fatal]
  - Fatigue [Unknown]
  - Full blood count decreased [Unknown]
  - Weight decreased [Recovering/Resolving]
  - Platelet count decreased [Unknown]
  - Muscular weakness [Unknown]
  - Haemoglobin decreased [Unknown]
  - Sepsis [Unknown]

NARRATIVE: CASE EVENT DATE: 2018
